FAERS Safety Report 9470270 (Version 1)
Quarter: 2013Q3

REPORT INFORMATION
  Report Type: Spontaneous
  Country: US (occurrence: US)
  Receive Date: 20130822
  Receipt Date: 20130822
  Transmission Date: 20140515
  Serious: Yes (Other)
  Sender: FDA-Public Use
  Company Number: US-SANOFI-AVENTIS-2013SA063289

PATIENT
  Sex: Female

DRUGS (3)
  1. MULTAQ [Suspect]
     Indication: PRODUCT USED FOR UNKNOWN INDICATION
  2. XARELTO [Interacting]
     Indication: ATRIAL FIBRILLATION
     Route: 048
     Dates: end: 2013
  3. XARELTO [Interacting]
     Indication: CEREBROVASCULAR ACCIDENT PROPHYLAXIS
     Route: 048
     Dates: end: 2013

REACTIONS (2)
  - Haemorrhage [Recovered/Resolved]
  - Drug interaction [Recovered/Resolved]
